FAERS Safety Report 5196044-5 (Version None)
Quarter: 2007Q1

REPORT INFORMATION
  Report Type: 
  Country: None (occurrence: None)
  Receive Date: 20070102
  Receipt Date: 20061219
  Transmission Date: 20070707
  Serious: Yes (Death, Life-Threatening)
  Sender: FDA-Public Use
  Company Number: CN-ROCHE-468997

PATIENT
  Sex: Female

DRUGS (6)
  1. ROCALTROL [Suspect]
     Indication: FEMUR FRACTURE
     Route: 048
     Dates: start: 20060825, end: 20060915
  2. ROCALTROL [Suspect]
     Route: 048
     Dates: start: 20060925, end: 20060925
  3. INSULIN [Concomitant]
     Route: 042
     Dates: start: 20060815, end: 20060915
  4. ACEI [Concomitant]
     Indication: HYPERTENSION
     Route: 048
     Dates: start: 20060815, end: 20060915
  5. FRUSEMIDE [Concomitant]
     Route: 042
     Dates: start: 20060825, end: 20060925
  6. ANTISTERONE [Concomitant]
     Route: 048
     Dates: start: 20060815, end: 20060915

REACTIONS (2)
  - COMA [None]
  - DEATH [None]
